FAERS Safety Report 23178966 (Version 1)
Quarter: 2023Q4

REPORT INFORMATION
  Report Type: Spontaneous
  Country: CA (occurrence: CA)
  Receive Date: 20231113
  Receipt Date: 20231113
  Transmission Date: 20240110
  Serious: Yes (Other)
  Sender: FDA-Public Use
  Company Number: CA-PFIZER INC-202300359218

PATIENT
  Age: 75 Year
  Sex: Female

DRUGS (3)
  1. DIFLUCAN [Suspect]
     Active Substance: FLUCONAZOLE
  2. COUMADIN [Suspect]
     Active Substance: WARFARIN SODIUM
     Dosage: 4 MG, DAILY
     Route: 048
  3. VITAMIN K1 [Suspect]
     Active Substance: PHYTONADIONE
     Indication: International normalised ratio increased

REACTIONS (2)
  - Epistaxis [Recovering/Resolving]
  - Wound haemorrhage [Recovering/Resolving]
